FAERS Safety Report 9821165 (Version 1)
Quarter: 2014Q1

REPORT INFORMATION
  Report Type: Spontaneous
  Country: US (occurrence: None)
  Receive Date: 20140115
  Receipt Date: 20140115
  Transmission Date: 20141002
  Serious: Yes (Disabling)
  Sender: FDA-Public Use
  Company Number: None

PATIENT
  Age: 50 Year
  Sex: Female
  Weight: 64.86 kg

DRUGS (1)
  1. CIPROFLOXACIN [Suspect]
     Indication: BACTERIAL INFECTION
     Dates: start: 20131219, end: 20131221

REACTIONS (10)
  - Muscle spasms [None]
  - Arthralgia [None]
  - Paraesthesia [None]
  - Hypoaesthesia oral [None]
  - Hypoaesthesia [None]
  - Hypoaesthesia [None]
  - Paraesthesia oral [None]
  - Paraesthesia [None]
  - Abasia [None]
  - Joint crepitation [None]
